FAERS Safety Report 24985317 (Version 2)
Quarter: 2025Q1

REPORT INFORMATION
  Report Type: Spontaneous
  Country: US (occurrence: US)
  Receive Date: 20250219
  Receipt Date: 20250327
  Transmission Date: 20250409
  Serious: Yes (Disabling, Other)
  Sender: CHATTEM
  Company Number: US-OPELLA-2025OHG004470

PATIENT
  Age: 77 Year
  Sex: Male

DRUGS (1)
  1. GOLD BOND ORIGINAL STRENGTH [Suspect]
     Active Substance: MENTHOL
     Indication: Product used for unknown indication
     Route: 065

REACTIONS (5)
  - Mesothelioma [Unknown]
  - Squamous cell carcinoma of lung [Unknown]
  - Metastatic squamous cell carcinoma [Unknown]
  - Exposure to chemical pollution [Unknown]
  - Occupational exposure to toxic agent [Unknown]

NARRATIVE: CASE EVENT DATE: 20230809
